FAERS Safety Report 25103704 (Version 2)
Quarter: 2025Q1

REPORT INFORMATION
  Report Type: Report from Study
  Country: CA (occurrence: CA)
  Receive Date: 20250321
  Receipt Date: 20250326
  Transmission Date: 20250409
  Serious: Yes (Hospitalization)
  Sender: ABBVIE
  Company Number: CA-ABBVIE-5970614

PATIENT
  Age: 82 Year
  Sex: Male
  Weight: 67.6 kg

DRUGS (8)
  1. RISANKIZUMAB [Suspect]
     Active Substance: RISANKIZUMAB
     Indication: Crohn^s disease
     Route: 058
     Dates: start: 20240405
  2. RISANKIZUMAB [Suspect]
     Active Substance: RISANKIZUMAB
     Indication: Crohn^s disease
     Route: 042
     Dates: start: 20240111, end: 20240307
  3. ENTOCORT [Concomitant]
     Active Substance: BUDESONIDE
     Indication: Crohn^s disease
     Route: 048
     Dates: start: 20231222
  4. SYNTHROID [Concomitant]
     Active Substance: LEVOTHYROXINE SODIUM
     Indication: Hypothyroidism
     Route: 048
     Dates: start: 202306
  5. ROSUVASTATIN [Concomitant]
     Active Substance: ROSUVASTATIN
     Indication: Hypercholesterolaemia
     Route: 048
     Dates: start: 2017
  6. VIGAMOX [Concomitant]
     Active Substance: MOXIFLOXACIN HYDROCHLORIDE
     Indication: Cataract operation
     Route: 031
     Dates: start: 20240214, end: 20240302
  7. NEVANAC [Concomitant]
     Active Substance: NEPAFENAC
     Indication: Cataract operation
     Route: 031
     Dates: start: 20240214, end: 20240316
  8. PRED FORTE [Concomitant]
     Active Substance: PREDNISOLONE ACETATE
     Indication: Cataract operation
     Route: 031
     Dates: start: 20240214, end: 20240316

REACTIONS (2)
  - Gastrointestinal disorder [Recovered/Resolved]
  - Intestinal mass [Recovered/Resolved]

NARRATIVE: CASE EVENT DATE: 20240308
